FAERS Safety Report 9306478 (Version 2)
Quarter: 2014Q2

REPORT INFORMATION
  Report Type: Spontaneous
  Country: BR (occurrence: BR)
  Receive Date: 20130523
  Receipt Date: 20140507
  Transmission Date: 20141212
  Serious: Yes (Hospitalization)
  Sender: FDA-Public Use
  Company Number: BR-ASTRAZENECA-2013SE35115

PATIENT
  Age: 48 Year
  Sex: Male
  Weight: 87 kg

DRUGS (7)
  1. NEXIUM [Suspect]
     Indication: GASTROOESOPHAGEAL REFLUX DISEASE
     Route: 048
     Dates: start: 201304, end: 201403
  2. NEXIUM [Suspect]
     Indication: GASTRITIS
     Route: 048
     Dates: start: 201304, end: 201403
  3. SELOZOK [Suspect]
     Indication: DRESSLER^S SYNDROME
     Route: 048
     Dates: start: 201305
  4. CRESTOR [Suspect]
     Indication: DRESSLER^S SYNDROME
     Route: 048
     Dates: start: 201305
  5. GLIFAGE [Suspect]
     Indication: DIABETES MELLITUS MANAGEMENT
     Dosage: ONCE DAILY
     Route: 048
     Dates: start: 2013
  6. TRAYENTA [Concomitant]
     Indication: PANCREATIC DISORDER
     Route: 048
  7. SOMALGIN [Concomitant]
     Indication: DRESSLER^S SYNDROME
     Route: 048
     Dates: start: 201305

REACTIONS (5)
  - Myocardial infarction [Recovering/Resolving]
  - Serum ferritin increased [Not Recovered/Not Resolved]
  - Blood uric acid increased [Not Recovered/Not Resolved]
  - Hyperglycaemia [Not Recovered/Not Resolved]
  - Off label use [Not Recovered/Not Resolved]
